APPROVED DRUG PRODUCT: LYBALVI
Active Ingredient: OLANZAPINE; SAMIDORPHAN L-MALATE
Strength: 5MG;EQ 10MG BASE
Dosage Form/Route: TABLET;ORAL
Application: N213378 | Product #001
Applicant: ALKERMES INC
Approved: May 28, 2021 | RLD: Yes | RS: Yes | Type: RX

PATENTS:
Patent 11241425 | Expires: Aug 23, 2031
Patent 12194035 | Expires: Aug 23, 2031
Patent 11185541 | Expires: Aug 23, 2031
Patent 11793805 | Expires: Aug 23, 2031
Patent 11351166 | Expires: Aug 23, 2031
Patent 11351166 | Expires: Aug 23, 2031
Patent 8778960 | Expires: Feb 13, 2032
Patent 8778960 | Expires: Feb 13, 2032
Patent 9126977 | Expires: Aug 23, 2031
Patent 9126977 | Expires: Aug 23, 2031
Patent 9517235 | Expires: Aug 23, 2031
Patent 9517235 | Expires: Aug 23, 2031
Patent 10716785 | Expires: Aug 23, 2031
Patent 10716785 | Expires: Aug 23, 2031
Patent 10300054 | Expires: May 31, 2033
Patent 10300054 | Expires: May 31, 2033
Patent 11951111 | Expires: Nov 12, 2041
Patent 11951111 | Expires: Nov 12, 2041
Patent 11707466 | Expires: Nov 12, 2041
Patent 12390474 | Expires: Nov 12, 2041
Patent 9119848 | Expires: Aug 30, 2031

EXCLUSIVITY:
Code: NCE | Date: May 28, 2026